FAERS Safety Report 15357118 (Version 1)
Quarter: 2018Q3

REPORT INFORMATION
  Report Type: Report from Study
  Country: US (occurrence: US)
  Receive Date: 20180906
  Receipt Date: 20180906
  Transmission Date: 20181010
  Serious: Yes (Hospitalization)
  Sender: FDA-Public Use
  Company Number: PHEH2018US036189

PATIENT
  Sex: Female
  Weight: 46.26 kg

DRUGS (1)
  1. ILARIS [Suspect]
     Active Substance: CANAKINUMAB
     Indication: PUSTULAR PSORIASIS
     Dosage: 150 MG, EVERY 3 WEEKS
     Route: 058

REACTIONS (3)
  - Cardiac disorder [Unknown]
  - Inappropriate schedule of drug administration [Unknown]
  - Product use in unapproved indication [Unknown]
